FAERS Safety Report 5381593-7 (Version None)
Quarter: 2007Q2

REPORT INFORMATION
  Report Type: 
  Country: None (occurrence: None)
  Receive Date: 20070629
  Receipt Date: 20070208
  Transmission Date: 20071010
  Serious: Yes (Hospitalization, Other)
  Sender: FDA-Public Use
  Company Number: 2007010756

PATIENT
  Age: 64 Year
  Sex: Female

DRUGS (7)
  1. ZOLOFT [Suspect]
     Indication: DEPRESSION
     Dosage: ORAL
     Route: 048
     Dates: start: 19990101, end: 20060101
  2. ARICEPT [Suspect]
     Indication: DEMENTIA
     Dosage: ORAL
     Route: 048
  3. NAMENDA [Suspect]
     Indication: DEMENTIA
     Dosage: ORAL
     Route: 048
     Dates: end: 20060101
  4. SYNTHROID [Concomitant]
  5. PLAVIX [Concomitant]
  6. ACTONEL [Concomitant]
  7. LAXATIVES (LAXATIVES) [Concomitant]

REACTIONS (1)
  - CONVULSION [None]
